FAERS Safety Report 11133484 (Version 3)
Quarter: 2019Q1

REPORT INFORMATION
  Report Type: Report from Study
  Country: CA (occurrence: CA)
  Receive Date: 20150522
  Receipt Date: 20190320
  Transmission Date: 20190417
  Serious: Yes (Other)
  Sender: FDA-Public Use
  Company Number: PHHY2015CA062324

PATIENT
  Age: 52 Year
  Sex: Male

DRUGS (3)
  1. RITALIN [Suspect]
     Active Substance: METHYLPHENIDATE HYDROCHLORIDE
     Indication: PSORIASIS
     Route: 065
  2. XOLAIR [Suspect]
     Active Substance: OMALIZUMAB
     Dosage: 150 MG, EVERY 4 WEEKS
     Route: 058
     Dates: start: 201711
  3. XOLAIR [Suspect]
     Active Substance: OMALIZUMAB
     Indication: CHRONIC SPONTANEOUS URTICARIA
     Dosage: 150 MG, EVERY 4 WEEKS
     Route: 058
     Dates: start: 20150520

REACTIONS (17)
  - Feeling abnormal [Unknown]
  - Productive cough [Unknown]
  - Sputum discoloured [Unknown]
  - Headache [Unknown]
  - Dizziness [Recovered/Resolved]
  - Influenza like illness [Unknown]
  - Throat irritation [Unknown]
  - Product use in unapproved indication [Unknown]
  - Bronchitis [Unknown]
  - Wheezing [Unknown]
  - Pruritus [Not Recovered/Not Resolved]
  - Pneumonia [Recovering/Resolving]
  - Respiratory tract congestion [Unknown]
  - Myalgia [Unknown]
  - Urticaria [Unknown]
  - Cough [Unknown]
  - Skin plaque [Unknown]

NARRATIVE: CASE EVENT DATE: 201505
